FAERS Safety Report 19902055 (Version 2)
Quarter: 2021Q4

REPORT INFORMATION
  Report Type: Spontaneous
  Country: PL (occurrence: PL)
  Receive Date: 20210930
  Receipt Date: 20211006
  Transmission Date: 20220303
  Serious: Yes (Hospitalization, Other)
  Sender: FDA-Public Use
  Company Number: PL-TEVA-2021-PL-1958194

PATIENT
  Age: 64 Year
  Sex: Female

DRUGS (6)
  1. INDAPAMIDE [Suspect]
     Active Substance: INDAPAMIDE
     Indication: Hypertension
     Dosage: 1.5 MILLIGRAM DAILY;
     Route: 065
  2. Amlodipine/bisoprolol [Concomitant]
     Indication: Hypertension
     Dosage: AMLODIPINE: 5 MG; BISOPROLOL: 5 MG
     Route: 065
  3. TELMISARTAN [Concomitant]
     Active Substance: TELMISARTAN
     Indication: Hypertension
     Dosage: 80 MILLIGRAM DAILY;
     Route: 065
  4. ASPIRIN [Concomitant]
     Active Substance: ASPIRIN
     Indication: Atrial fibrillation
     Dosage: 75 MILLIGRAM DAILY;
     Route: 065
  5. METHIMAZOLE [Concomitant]
     Active Substance: METHIMAZOLE
     Indication: Hyperthyroidism
     Dosage: 2.5 MILLIGRAM DAILY;
     Route: 065
  6. FUROSEMIDE [Concomitant]
     Active Substance: FUROSEMIDE
     Indication: Hypertension
     Dosage: INTERMITTENTLY, 1-3 TIMES PER WEEK.
     Route: 065

REACTIONS (4)
  - Hyponatraemia [Recovered/Resolved]
  - Insomnia [Recovered/Resolved]
  - Quality of life decreased [Recovered/Resolved]
  - Loss of personal independence in daily activities [Recovered/Resolved]
